FAERS Safety Report 15714254 (Version 1)
Quarter: 2018Q4

REPORT INFORMATION
  Report Type: Spontaneous
  Country: US (occurrence: US)
  Receive Date: 20181129
  Receipt Date: 20181129
  Transmission Date: 20190205
  Serious: Yes (Hospitalization)
  Sender: FDA-Public Use
  Company Number: None

PATIENT
  Age: 64 Year
  Sex: Male
  Weight: 79.83 kg

DRUGS (1)
  1. FLUPHENAZINE [Suspect]
     Active Substance: FLUPHENAZINE
     Indication: PSYCHOTIC DISORDER
     Dosage: ?          OTHER FREQUENCY:OTHER;?
     Route: 030
     Dates: start: 20170901, end: 20180406

REACTIONS (2)
  - Mental status changes [None]
  - Parkinsonism [None]

NARRATIVE: CASE EVENT DATE: 20180406
